FAERS Safety Report 17276517 (Version 1)
Quarter: 2020Q1

REPORT INFORMATION
  Report Type: Report from Study
  Country: US (occurrence: US)
  Receive Date: 20200116
  Receipt Date: 20200116
  Transmission Date: 20200409
  Serious: Yes (Hospitalization, Other)
  Sender: FDA-Public Use
  Company Number: US-BAYER-2020-004951

PATIENT
  Age: 73 Year
  Sex: Female

DRUGS (1)
  1. ASPIRIN. [Suspect]
     Active Substance: ASPIRIN

REACTIONS (5)
  - Hemiplegia [None]
  - Seizure [None]
  - Paresis [None]
  - Monoplegia [None]
  - Subdural haematoma [None]
